FAERS Safety Report 19793788 (Version 1)
Quarter: 2021Q3

REPORT INFORMATION
  Report Type: Spontaneous
  Country: US (occurrence: US)
  Receive Date: 20210907
  Receipt Date: 20210907
  Transmission Date: 20211014
  Serious: Yes (Death)
  Sender: FDA-Public Use
  Company Number: US-CHIESI-2021CHF04396

PATIENT

DRUGS (2)
  1. CUROSURF [Suspect]
     Active Substance: PORACTANT ALFA
     Indication: OFF LABEL USE
  2. CUROSURF [Suspect]
     Active Substance: PORACTANT ALFA
     Indication: RESPIRATORY FAILURE
     Dosage: UNK

REACTIONS (7)
  - Neonatal hypoxia [Fatal]
  - Hypotension [Fatal]
  - Pulmonary haemorrhage neonatal [Fatal]
  - Intraventricular haemorrhage neonatal [Fatal]
  - Off label use [Recovered/Resolved]
  - Neonatal pneumothorax [Fatal]
  - Endotracheal intubation complication [Fatal]
